FAERS Safety Report 15775406 (Version 1)
Quarter: 2018Q4

REPORT INFORMATION
  Report Type: Spontaneous
  Country: DE (occurrence: DE)
  Receive Date: 20181231
  Receipt Date: 20181231
  Transmission Date: 20190205
  Serious: Yes (Other)
  Sender: FDA-Public Use
  Company Number: DE-TEVA-2018-DE-992883

PATIENT
  Age: 90 Year
  Sex: Female

DRUGS (4)
  1. AMLODIPINE BESILATE [Concomitant]
     Active Substance: AMLODIPINE BESYLATE
     Dosage: INTAKE FOR AT LEAST 5 YEARS
     Route: 065
  2. HCT 25MG [Suspect]
     Active Substance: HYDROCHLOROTHIAZIDE
     Dates: start: 2003
  3. MELPERON 25 [Concomitant]
     Active Substance: MELPERONE
     Dosage: INGESTION FOR AT LEAST 5 YEARS
  4. RAMIPRIL. [Concomitant]
     Active Substance: RAMIPRIL
     Dosage: INGESTION FOR AT LEAST 5 YEARS

REACTIONS (1)
  - Basal cell carcinoma [Not Recovered/Not Resolved]
